FAERS Safety Report 24832499 (Version 4)
Quarter: 2025Q1

REPORT INFORMATION
  Report Type: Spontaneous
  Country: CA (occurrence: CA)
  Receive Date: 20250110
  Receipt Date: 20250331
  Transmission Date: 20250408
  Serious: Yes (Life-Threatening, Hospitalization, Disabling, Other)
  Sender: MYLAN
  Company Number: CA-MYLANLABS-2025M1000924

PATIENT
  Age: 65 Year
  Sex: Female
  Weight: 69 kg

DRUGS (616)
  1. LIPITOR [Suspect]
     Active Substance: ATORVASTATIN CALCIUM
     Indication: Product used for unknown indication
     Dosage: 20 MILLIGRAM, QD (1 IN 24 HOURS)
  2. LIPITOR [Suspect]
     Active Substance: ATORVASTATIN CALCIUM
     Dosage: 20 MILLIGRAM, QD (1 IN 24 HOURS)
  3. LIPITOR [Suspect]
     Active Substance: ATORVASTATIN CALCIUM
     Dosage: 20 MILLIGRAM, QD (1 IN 24 HOURS)
     Route: 065
  4. LIPITOR [Suspect]
     Active Substance: ATORVASTATIN CALCIUM
     Dosage: 20 MILLIGRAM, QD (1 IN 24 HOURS)
     Route: 065
  5. LIPITOR [Suspect]
     Active Substance: ATORVASTATIN CALCIUM
     Dosage: 20 MILLIGRAM, QD (1 IN 1 D)
  6. LIPITOR [Suspect]
     Active Substance: ATORVASTATIN CALCIUM
     Dosage: 20 MILLIGRAM, QD (1 IN 1 D)
  7. LIPITOR [Suspect]
     Active Substance: ATORVASTATIN CALCIUM
     Dosage: 20 MILLIGRAM, QD (1 IN 1 D)
     Route: 048
  8. LIPITOR [Suspect]
     Active Substance: ATORVASTATIN CALCIUM
     Dosage: 20 MILLIGRAM, QD (1 IN 1 D)
     Route: 048
  9. AMLODIPINE [Suspect]
     Active Substance: AMLODIPINE BESYLATE
     Indication: Product used for unknown indication
     Dosage: 5 MILLIGRAM, QD (1 IN 1 DAYS)
  10. AMLODIPINE [Suspect]
     Active Substance: AMLODIPINE BESYLATE
     Dosage: 5 MILLIGRAM, QD (1 IN 1 DAYS)
  11. AMLODIPINE [Suspect]
     Active Substance: AMLODIPINE BESYLATE
     Dosage: 5 MILLIGRAM, QD (1 IN 1 DAYS)
     Route: 048
  12. AMLODIPINE [Suspect]
     Active Substance: AMLODIPINE BESYLATE
     Dosage: 5 MILLIGRAM, QD (1 IN 1 DAYS)
     Route: 048
  13. AMLODIPINE [Suspect]
     Active Substance: AMLODIPINE BESYLATE
     Route: 065
  14. AMLODIPINE [Suspect]
     Active Substance: AMLODIPINE BESYLATE
     Route: 065
  15. AMLODIPINE [Suspect]
     Active Substance: AMLODIPINE BESYLATE
  16. AMLODIPINE [Suspect]
     Active Substance: AMLODIPINE BESYLATE
  17. AMLODIPINE [Suspect]
     Active Substance: AMLODIPINE BESYLATE
     Dosage: 5 DOSAGE FORM, QD (1 IN 24 HOURS)
     Route: 065
  18. AMLODIPINE [Suspect]
     Active Substance: AMLODIPINE BESYLATE
     Dosage: 5 DOSAGE FORM, QD (1 IN 24 HOURS)
     Route: 065
  19. AMLODIPINE [Suspect]
     Active Substance: AMLODIPINE BESYLATE
     Dosage: 5 DOSAGE FORM, QD (1 IN 24 HOURS)
  20. AMLODIPINE [Suspect]
     Active Substance: AMLODIPINE BESYLATE
     Dosage: 5 DOSAGE FORM, QD (1 IN 24 HOURS)
  21. AMLODIPINE [Suspect]
     Active Substance: AMLODIPINE BESYLATE
     Dosage: 5 DOSAGE FORM, QD (1 IN 24 HOURS) THREE ADMINSTERED
  22. AMLODIPINE [Suspect]
     Active Substance: AMLODIPINE BESYLATE
     Dosage: 5 DOSAGE FORM, QD (1 IN 24 HOURS) THREE ADMINSTERED
  23. AMLODIPINE [Suspect]
     Active Substance: AMLODIPINE BESYLATE
     Dosage: 5 DOSAGE FORM, QD (1 IN 24 HOURS) THREE ADMINSTERED
     Route: 048
  24. AMLODIPINE [Suspect]
     Active Substance: AMLODIPINE BESYLATE
     Dosage: 5 DOSAGE FORM, QD (1 IN 24 HOURS) THREE ADMINSTERED
     Route: 048
  25. AMLODIPINE [Suspect]
     Active Substance: AMLODIPINE BESYLATE
     Indication: Product used for unknown indication
  26. AMLODIPINE [Suspect]
     Active Substance: AMLODIPINE BESYLATE
  27. AMLODIPINE [Suspect]
     Active Substance: AMLODIPINE BESYLATE
     Route: 065
  28. AMLODIPINE [Suspect]
     Active Substance: AMLODIPINE BESYLATE
     Route: 065
  29. AMLODIPINE [Suspect]
     Active Substance: AMLODIPINE BESYLATE
     Dosage: 5 MILLIGRAM, QD (1 EVERY 1 DAY)
  30. AMLODIPINE [Suspect]
     Active Substance: AMLODIPINE BESYLATE
     Dosage: 5 MILLIGRAM, QD (1 EVERY 1 DAY)
  31. AMLODIPINE [Suspect]
     Active Substance: AMLODIPINE BESYLATE
     Dosage: 5 MILLIGRAM, QD (1 EVERY 1 DAY)
     Route: 048
  32. AMLODIPINE [Suspect]
     Active Substance: AMLODIPINE BESYLATE
     Dosage: 5 MILLIGRAM, QD (1 EVERY 1 DAY)
     Route: 048
  33. LEVOTHYROXINE [Suspect]
     Active Substance: LEVOTHYROXINE
     Indication: Product used for unknown indication
  34. LEVOTHYROXINE [Suspect]
     Active Substance: LEVOTHYROXINE
     Route: 065
  35. LEVOTHYROXINE [Suspect]
     Active Substance: LEVOTHYROXINE
     Route: 065
  36. LEVOTHYROXINE [Suspect]
     Active Substance: LEVOTHYROXINE
  37. METFORMIN [Suspect]
     Active Substance: METFORMIN HYDROCHLORIDE
     Indication: Product used for unknown indication
     Route: 065
  38. METFORMIN [Suspect]
     Active Substance: METFORMIN HYDROCHLORIDE
  39. METFORMIN [Suspect]
     Active Substance: METFORMIN HYDROCHLORIDE
  40. METFORMIN [Suspect]
     Active Substance: METFORMIN HYDROCHLORIDE
     Route: 065
  41. METFORMIN [Suspect]
     Active Substance: METFORMIN HYDROCHLORIDE
     Dosage: 850 MILLIGRAM, TID (1 IN 8 HR) (3 EVERY 1 DAYS)
     Route: 048
  42. METFORMIN [Suspect]
     Active Substance: METFORMIN HYDROCHLORIDE
     Dosage: 850 MILLIGRAM, TID (1 IN 8 HR) (3 EVERY 1 DAYS)
  43. METFORMIN [Suspect]
     Active Substance: METFORMIN HYDROCHLORIDE
     Dosage: 850 MILLIGRAM, TID (1 IN 8 HR) (3 EVERY 1 DAYS)
  44. METFORMIN [Suspect]
     Active Substance: METFORMIN HYDROCHLORIDE
     Dosage: 850 MILLIGRAM, TID (1 IN 8 HR) (3 EVERY 1 DAYS)
     Route: 048
  45. METFORMIN [Suspect]
     Active Substance: METFORMIN HYDROCHLORIDE
     Indication: Product used for unknown indication
  46. METFORMIN [Suspect]
     Active Substance: METFORMIN HYDROCHLORIDE
  47. METFORMIN [Suspect]
     Active Substance: METFORMIN HYDROCHLORIDE
     Route: 048
  48. METFORMIN [Suspect]
     Active Substance: METFORMIN HYDROCHLORIDE
     Route: 048
  49. METFORMIN [Suspect]
     Active Substance: METFORMIN HYDROCHLORIDE
     Dosage: 2550 MILLIGRAM, QD (1 IN 24 HOURS)
  50. METFORMIN [Suspect]
     Active Substance: METFORMIN HYDROCHLORIDE
     Dosage: 2550 MILLIGRAM, QD (1 IN 24 HOURS)
  51. METFORMIN [Suspect]
     Active Substance: METFORMIN HYDROCHLORIDE
     Dosage: 2550 MILLIGRAM, QD (1 IN 24 HOURS)
     Route: 048
  52. METFORMIN [Suspect]
     Active Substance: METFORMIN HYDROCHLORIDE
     Dosage: 2550 MILLIGRAM, QD (1 IN 24 HOURS)
     Route: 048
  53. DIPHENHYDRAMINE [Suspect]
     Active Substance: DIPHENHYDRAMINE
     Indication: Premedication
     Dosage: 50 MILLIGRAM, QD (1 IN 24 HOURS)
  54. DIPHENHYDRAMINE [Suspect]
     Active Substance: DIPHENHYDRAMINE
     Dosage: 50 MILLIGRAM, QD (1 IN 24 HOURS)
     Route: 065
  55. DIPHENHYDRAMINE [Suspect]
     Active Substance: DIPHENHYDRAMINE
     Dosage: 50 MILLIGRAM, QD (1 IN 24 HOURS)
     Route: 065
  56. DIPHENHYDRAMINE [Suspect]
     Active Substance: DIPHENHYDRAMINE
     Dosage: 50 MILLIGRAM, QD (1 IN 24 HOURS)
  57. ZOLPIDEM [Suspect]
     Active Substance: ZOLPIDEM TARTRATE
     Indication: Product used for unknown indication
     Route: 065
  58. ZOLPIDEM [Suspect]
     Active Substance: ZOLPIDEM TARTRATE
  59. ZOLPIDEM [Suspect]
     Active Substance: ZOLPIDEM TARTRATE
  60. ZOLPIDEM [Suspect]
     Active Substance: ZOLPIDEM TARTRATE
     Route: 065
  61. ZOLPIDEM [Suspect]
     Active Substance: ZOLPIDEM TARTRATE
     Route: 048
  62. ZOLPIDEM [Suspect]
     Active Substance: ZOLPIDEM TARTRATE
  63. ZOLPIDEM [Suspect]
     Active Substance: ZOLPIDEM TARTRATE
  64. ZOLPIDEM [Suspect]
     Active Substance: ZOLPIDEM TARTRATE
     Route: 048
  65. SYNTHROID [Suspect]
     Active Substance: LEVOTHYROXINE SODIUM
     Indication: Product used for unknown indication
  66. SYNTHROID [Suspect]
     Active Substance: LEVOTHYROXINE SODIUM
     Route: 065
  67. SYNTHROID [Suspect]
     Active Substance: LEVOTHYROXINE SODIUM
     Route: 065
  68. SYNTHROID [Suspect]
     Active Substance: LEVOTHYROXINE SODIUM
  69. IRBESARTAN [Suspect]
     Active Substance: IRBESARTAN
     Indication: Hypertension
     Dosage: 300 MILLIGRAM, QD (1 IN 1 DAYS)
     Route: 048
  70. IRBESARTAN [Suspect]
     Active Substance: IRBESARTAN
     Dosage: 300 MILLIGRAM, QD (1 IN 1 DAYS)
  71. IRBESARTAN [Suspect]
     Active Substance: IRBESARTAN
     Dosage: 300 MILLIGRAM, QD (1 IN 1 DAYS)
  72. IRBESARTAN [Suspect]
     Active Substance: IRBESARTAN
     Dosage: 300 MILLIGRAM, QD (1 IN 1 DAYS)
     Route: 048
  73. IRBESARTAN [Suspect]
     Active Substance: IRBESARTAN
     Dosage: 1 DOSAGE FORM, QD (1 EVERY 1 DAY)
     Route: 048
  74. IRBESARTAN [Suspect]
     Active Substance: IRBESARTAN
     Dosage: 1 DOSAGE FORM, QD (1 EVERY 1 DAY)
  75. IRBESARTAN [Suspect]
     Active Substance: IRBESARTAN
     Dosage: 1 DOSAGE FORM, QD (1 EVERY 1 DAY)
  76. IRBESARTAN [Suspect]
     Active Substance: IRBESARTAN
     Dosage: 1 DOSAGE FORM, QD (1 EVERY 1 DAY)
     Route: 048
  77. IRBESARTAN [Suspect]
     Active Substance: IRBESARTAN
     Indication: Hypertension
  78. IRBESARTAN [Suspect]
     Active Substance: IRBESARTAN
     Route: 048
  79. IRBESARTAN [Suspect]
     Active Substance: IRBESARTAN
     Route: 048
  80. IRBESARTAN [Suspect]
     Active Substance: IRBESARTAN
  81. IRBESARTAN [Suspect]
     Active Substance: IRBESARTAN
     Indication: Hypertension
     Dosage: 300 MILLIGRAM, QD (1 IN 1 DAYS)
  82. IRBESARTAN [Suspect]
     Active Substance: IRBESARTAN
     Dosage: 300 MILLIGRAM, QD (1 IN 1 DAYS)
  83. IRBESARTAN [Suspect]
     Active Substance: IRBESARTAN
     Dosage: 300 MILLIGRAM, QD (1 IN 1 DAYS)
     Route: 048
  84. IRBESARTAN [Suspect]
     Active Substance: IRBESARTAN
     Dosage: 300 MILLIGRAM, QD (1 IN 1 DAYS)
     Route: 048
  85. IRBESARTAN [Suspect]
     Active Substance: IRBESARTAN
     Dosage: 1 DOSAGE FORM, QD (1 EVERY 1 DAY)
  86. IRBESARTAN [Suspect]
     Active Substance: IRBESARTAN
     Dosage: 1 DOSAGE FORM, QD (1 EVERY 1 DAY)
  87. IRBESARTAN [Suspect]
     Active Substance: IRBESARTAN
     Dosage: 1 DOSAGE FORM, QD (1 EVERY 1 DAY)
     Route: 048
  88. IRBESARTAN [Suspect]
     Active Substance: IRBESARTAN
     Dosage: 1 DOSAGE FORM, QD (1 EVERY 1 DAY)
     Route: 048
  89. ACETAMINOPHEN [Suspect]
     Active Substance: ACETAMINOPHEN
     Indication: Product used for unknown indication
     Dosage: 650 MILLIGRAM, QD (1 IN 24 HOURS)
     Route: 065
  90. ACETAMINOPHEN [Suspect]
     Active Substance: ACETAMINOPHEN
     Dosage: 650 MILLIGRAM, QD (1 IN 24 HOURS)
  91. ACETAMINOPHEN [Suspect]
     Active Substance: ACETAMINOPHEN
     Dosage: 650 MILLIGRAM, QD (1 IN 24 HOURS)
  92. ACETAMINOPHEN [Suspect]
     Active Substance: ACETAMINOPHEN
     Dosage: 650 MILLIGRAM, QD (1 IN 24 HOURS)
     Route: 065
  93. ACETAMINOPHEN [Suspect]
     Active Substance: ACETAMINOPHEN
     Dosage: 650 MILLIGRAM, QD (1 IN 1 D)
     Route: 048
  94. ACETAMINOPHEN [Suspect]
     Active Substance: ACETAMINOPHEN
     Dosage: 650 MILLIGRAM, QD (1 IN 1 D)
  95. ACETAMINOPHEN [Suspect]
     Active Substance: ACETAMINOPHEN
     Dosage: 650 MILLIGRAM, QD (1 IN 1 D)
  96. ACETAMINOPHEN [Suspect]
     Active Substance: ACETAMINOPHEN
     Dosage: 650 MILLIGRAM, QD (1 IN 1 D)
     Route: 048
  97. ASPIRIN [Suspect]
     Active Substance: ASPIRIN
     Indication: Product used for unknown indication
     Dosage: 1 DOSAGE FORM, QD (1 IN  24 HOURS)
     Route: 065
  98. ASPIRIN [Suspect]
     Active Substance: ASPIRIN
     Dosage: 1 DOSAGE FORM, QD (1 IN  24 HOURS)
  99. ASPIRIN [Suspect]
     Active Substance: ASPIRIN
     Dosage: 1 DOSAGE FORM, QD (1 IN  24 HOURS)
  100. ASPIRIN [Suspect]
     Active Substance: ASPIRIN
     Dosage: 1 DOSAGE FORM, QD (1 IN  24 HOURS)
     Route: 065
  101. ASPIRIN [Suspect]
     Active Substance: ASPIRIN
     Route: 065
  102. ASPIRIN [Suspect]
     Active Substance: ASPIRIN
  103. ASPIRIN [Suspect]
     Active Substance: ASPIRIN
  104. ASPIRIN [Suspect]
     Active Substance: ASPIRIN
     Route: 065
  105. ASPIRIN [Suspect]
     Active Substance: ASPIRIN
     Dosage: 1 DOSAGE FORM, QD (1 IN 1 D)
     Route: 048
  106. ASPIRIN [Suspect]
     Active Substance: ASPIRIN
     Dosage: 1 DOSAGE FORM, QD (1 IN 1 D)
     Route: 048
  107. ASPIRIN [Suspect]
     Active Substance: ASPIRIN
     Dosage: 1 DOSAGE FORM, QD (1 IN 1 D)
  108. ASPIRIN [Suspect]
     Active Substance: ASPIRIN
     Dosage: 1 DOSAGE FORM, QD (1 IN 1 D)
  109. HYDROCHLOROTHIAZIDE\IRBESARTAN [Suspect]
     Active Substance: HYDROCHLOROTHIAZIDE\IRBESARTAN
     Indication: Hypertension
     Dosage: 1 DOSAGE FORM, QD (1 EVERY 1 DAY)
  110. HYDROCHLOROTHIAZIDE\IRBESARTAN [Suspect]
     Active Substance: HYDROCHLOROTHIAZIDE\IRBESARTAN
     Dosage: 1 DOSAGE FORM, QD (1 EVERY 1 DAY)
     Route: 048
  111. HYDROCHLOROTHIAZIDE\IRBESARTAN [Suspect]
     Active Substance: HYDROCHLOROTHIAZIDE\IRBESARTAN
     Dosage: 1 DOSAGE FORM, QD (1 EVERY 1 DAY)
     Route: 048
  112. HYDROCHLOROTHIAZIDE\IRBESARTAN [Suspect]
     Active Substance: HYDROCHLOROTHIAZIDE\IRBESARTAN
     Dosage: 1 DOSAGE FORM, QD (1 EVERY 1 DAY)
  113. CALCIUM CARBONATE [Suspect]
     Active Substance: CALCIUM CARBONATE
     Indication: Product used for unknown indication
     Route: 065
  114. CALCIUM CARBONATE [Suspect]
     Active Substance: CALCIUM CARBONATE
  115. CALCIUM CARBONATE [Suspect]
     Active Substance: CALCIUM CARBONATE
  116. CALCIUM CARBONATE [Suspect]
     Active Substance: CALCIUM CARBONATE
     Route: 065
  117. CALCIUM CARBONATE [Suspect]
     Active Substance: CALCIUM CARBONATE
     Dosage: 20 MILLIGRAM, QD (1 IN 1 D)
     Route: 048
  118. CALCIUM CARBONATE [Suspect]
     Active Substance: CALCIUM CARBONATE
     Dosage: 20 MILLIGRAM, QD (1 IN 1 D)
  119. CALCIUM CARBONATE [Suspect]
     Active Substance: CALCIUM CARBONATE
     Dosage: 20 MILLIGRAM, QD (1 IN 1 D)
  120. CALCIUM CARBONATE [Suspect]
     Active Substance: CALCIUM CARBONATE
     Dosage: 20 MILLIGRAM, QD (1 IN 1 D)
     Route: 048
  121. CALCIUM CARBONATE [Suspect]
     Active Substance: CALCIUM CARBONATE
     Route: 048
  122. CALCIUM CARBONATE [Suspect]
     Active Substance: CALCIUM CARBONATE
     Route: 048
  123. CALCIUM CARBONATE [Suspect]
     Active Substance: CALCIUM CARBONATE
  124. CALCIUM CARBONATE [Suspect]
     Active Substance: CALCIUM CARBONATE
  125. ONDANSETRON [Suspect]
     Active Substance: ONDANSETRON
     Indication: Product used for unknown indication
  126. ONDANSETRON [Suspect]
     Active Substance: ONDANSETRON
     Route: 065
  127. ONDANSETRON [Suspect]
     Active Substance: ONDANSETRON
     Route: 065
  128. ONDANSETRON [Suspect]
     Active Substance: ONDANSETRON
  129. MORPHINE [Suspect]
     Active Substance: MORPHINE
     Indication: Product used for unknown indication
     Route: 065
  130. MORPHINE [Suspect]
     Active Substance: MORPHINE
  131. MORPHINE [Suspect]
     Active Substance: MORPHINE
  132. MORPHINE [Suspect]
     Active Substance: MORPHINE
     Route: 065
  133. MORPHINE [Suspect]
     Active Substance: MORPHINE
     Route: 030
  134. MORPHINE [Suspect]
     Active Substance: MORPHINE
  135. MORPHINE [Suspect]
     Active Substance: MORPHINE
  136. MORPHINE [Suspect]
     Active Substance: MORPHINE
     Route: 030
  137. BISOPROLOL [Suspect]
     Active Substance: BISOPROLOL
     Indication: Product used for unknown indication
  138. BISOPROLOL [Suspect]
     Active Substance: BISOPROLOL
     Route: 065
  139. BISOPROLOL [Suspect]
     Active Substance: BISOPROLOL
     Route: 065
  140. BISOPROLOL [Suspect]
     Active Substance: BISOPROLOL
  141. CANDESARTAN [Suspect]
     Active Substance: CANDESARTAN
     Indication: Hypertension
     Route: 048
  142. CANDESARTAN [Suspect]
     Active Substance: CANDESARTAN
  143. CANDESARTAN [Suspect]
     Active Substance: CANDESARTAN
  144. CANDESARTAN [Suspect]
     Active Substance: CANDESARTAN
     Route: 048
  145. CANDESARTAN [Suspect]
     Active Substance: CANDESARTAN
     Dosage: 150 MILLIGRAM, QD (1 IN 1D)
     Route: 048
  146. CANDESARTAN [Suspect]
     Active Substance: CANDESARTAN
     Dosage: 150 MILLIGRAM, QD (1 IN 1D)
  147. CANDESARTAN [Suspect]
     Active Substance: CANDESARTAN
     Dosage: 150 MILLIGRAM, QD (1 IN 1D)
  148. CANDESARTAN [Suspect]
     Active Substance: CANDESARTAN
     Dosage: 150 MILLIGRAM, QD (1 IN 1D)
     Route: 048
  149. COSENTYX [Suspect]
     Active Substance: SECUKINUMAB
     Indication: Hypertension
     Dosage: 300 MILLIGRAM, MONTHLY (1 IN 1 MONTHS)
  150. COSENTYX [Suspect]
     Active Substance: SECUKINUMAB
     Indication: Psoriasis
     Dosage: 300 MILLIGRAM, MONTHLY (1 IN 1 MONTHS)
  151. COSENTYX [Suspect]
     Active Substance: SECUKINUMAB
     Indication: Psoriatic arthropathy
     Dosage: 300 MILLIGRAM, MONTHLY (1 IN 1 MONTHS)
     Route: 058
  152. COSENTYX [Suspect]
     Active Substance: SECUKINUMAB
     Dosage: 300 MILLIGRAM, MONTHLY (1 IN 1 MONTHS)
     Route: 058
  153. COSENTYX [Suspect]
     Active Substance: SECUKINUMAB
     Route: 058
  154. COSENTYX [Suspect]
     Active Substance: SECUKINUMAB
     Route: 058
  155. COSENTYX [Suspect]
     Active Substance: SECUKINUMAB
  156. COSENTYX [Suspect]
     Active Substance: SECUKINUMAB
  157. COSENTYX [Suspect]
     Active Substance: SECUKINUMAB
     Route: 065
  158. COSENTYX [Suspect]
     Active Substance: SECUKINUMAB
  159. COSENTYX [Suspect]
     Active Substance: SECUKINUMAB
  160. COSENTYX [Suspect]
     Active Substance: SECUKINUMAB
     Route: 065
  161. COSENTYX [Suspect]
     Active Substance: SECUKINUMAB
     Dosage: 300 MILLIGRAM, MONTHLY (1 IN 1 MONTHS)
     Route: 065
  162. COSENTYX [Suspect]
     Active Substance: SECUKINUMAB
     Dosage: 300 MILLIGRAM, MONTHLY (1 IN 1 MONTHS)
     Route: 065
  163. COSENTYX [Suspect]
     Active Substance: SECUKINUMAB
     Dosage: 300 MILLIGRAM, MONTHLY (1 IN 1 MONTHS)
  164. COSENTYX [Suspect]
     Active Substance: SECUKINUMAB
     Dosage: 300 MILLIGRAM, MONTHLY (1 IN 1 MONTHS)
  165. COSENTYX [Suspect]
     Active Substance: SECUKINUMAB
     Route: 058
  166. COSENTYX [Suspect]
     Active Substance: SECUKINUMAB
  167. COSENTYX [Suspect]
     Active Substance: SECUKINUMAB
  168. COSENTYX [Suspect]
     Active Substance: SECUKINUMAB
     Route: 058
  169. COSENTYX [Suspect]
     Active Substance: SECUKINUMAB
     Route: 065
  170. COSENTYX [Suspect]
     Active Substance: SECUKINUMAB
     Route: 065
  171. COSENTYX [Suspect]
     Active Substance: SECUKINUMAB
  172. COSENTYX [Suspect]
     Active Substance: SECUKINUMAB
  173. COSENTYX [Suspect]
     Active Substance: SECUKINUMAB
     Route: 058
  174. COSENTYX [Suspect]
     Active Substance: SECUKINUMAB
  175. COSENTYX [Suspect]
     Active Substance: SECUKINUMAB
  176. COSENTYX [Suspect]
     Active Substance: SECUKINUMAB
     Route: 058
  177. COSENTYX [Suspect]
     Active Substance: SECUKINUMAB
     Dosage: 300 MILLIGRAM, QW (1 IN 1 WK)
     Route: 065
  178. COSENTYX [Suspect]
     Active Substance: SECUKINUMAB
     Dosage: 300 MILLIGRAM, QW (1 IN 1 WK)
     Route: 065
  179. COSENTYX [Suspect]
     Active Substance: SECUKINUMAB
     Dosage: 300 MILLIGRAM, QW (1 IN 1 WK)
  180. COSENTYX [Suspect]
     Active Substance: SECUKINUMAB
     Dosage: 300 MILLIGRAM, QW (1 IN 1 WK)
  181. COSENTYX [Suspect]
     Active Substance: SECUKINUMAB
     Dosage: 300 MILLIGRAM, QW (1 IN 1 WK)
     Route: 065
  182. COSENTYX [Suspect]
     Active Substance: SECUKINUMAB
     Dosage: 300 MILLIGRAM, QW (1 IN 1 WK)
  183. COSENTYX [Suspect]
     Active Substance: SECUKINUMAB
     Dosage: 300 MILLIGRAM, QW (1 IN 1 WK)
  184. COSENTYX [Suspect]
     Active Substance: SECUKINUMAB
     Dosage: 300 MILLIGRAM, QW (1 IN 1 WK)
     Route: 065
  185. COSENTYX [Suspect]
     Active Substance: SECUKINUMAB
     Dosage: 30 MILLIGRAM, MONTHLY  (1 IN 1 M)
  186. COSENTYX [Suspect]
     Active Substance: SECUKINUMAB
     Dosage: 30 MILLIGRAM, MONTHLY  (1 IN 1 M)
  187. COSENTYX [Suspect]
     Active Substance: SECUKINUMAB
     Dosage: 30 MILLIGRAM, MONTHLY  (1 IN 1 M)
     Route: 065
  188. COSENTYX [Suspect]
     Active Substance: SECUKINUMAB
     Dosage: 30 MILLIGRAM, MONTHLY  (1 IN 1 M)
     Route: 065
  189. COSENTYX [Suspect]
     Active Substance: SECUKINUMAB
     Indication: Hypertension
  190. COSENTYX [Suspect]
     Active Substance: SECUKINUMAB
     Indication: Psoriasis
     Route: 058
  191. COSENTYX [Suspect]
     Active Substance: SECUKINUMAB
     Indication: Psoriatic arthropathy
     Route: 058
  192. COSENTYX [Suspect]
     Active Substance: SECUKINUMAB
  193. COSENTYX [Suspect]
     Active Substance: SECUKINUMAB
  194. COSENTYX [Suspect]
     Active Substance: SECUKINUMAB
  195. COSENTYX [Suspect]
     Active Substance: SECUKINUMAB
     Route: 065
  196. COSENTYX [Suspect]
     Active Substance: SECUKINUMAB
     Route: 065
  197. COSENTYX [Suspect]
     Active Substance: SECUKINUMAB
     Dosage: 300 MILLIGRAM, MONTHLY (1 IN 1 MONTHS)
  198. COSENTYX [Suspect]
     Active Substance: SECUKINUMAB
     Dosage: 300 MILLIGRAM, MONTHLY (1 IN 1 MONTHS)
     Route: 058
  199. COSENTYX [Suspect]
     Active Substance: SECUKINUMAB
     Dosage: 300 MILLIGRAM, MONTHLY (1 IN 1 MONTHS)
     Route: 058
  200. COSENTYX [Suspect]
     Active Substance: SECUKINUMAB
     Dosage: 300 MILLIGRAM, MONTHLY (1 IN 1 MONTHS)
  201. COSENTYX [Suspect]
     Active Substance: SECUKINUMAB
     Dosage: 300 MILLIGRAM, MONTHLY (1 IN 1 MONTHS)
  202. COSENTYX [Suspect]
     Active Substance: SECUKINUMAB
     Dosage: 300 MILLIGRAM, MONTHLY (1 IN 1 MONTHS)
     Route: 065
  203. COSENTYX [Suspect]
     Active Substance: SECUKINUMAB
     Dosage: 300 MILLIGRAM, MONTHLY (1 IN 1 MONTHS)
  204. COSENTYX [Suspect]
     Active Substance: SECUKINUMAB
     Dosage: 300 MILLIGRAM, MONTHLY (1 IN 1 MONTHS)
     Route: 065
  205. COSENTYX [Suspect]
     Active Substance: SECUKINUMAB
     Dosage: 300 MILLIGRAM, QW (1 IN 1 WEEKS)
  206. COSENTYX [Suspect]
     Active Substance: SECUKINUMAB
     Dosage: 300 MILLIGRAM, QW (1 IN 1 WEEKS)
  207. COSENTYX [Suspect]
     Active Substance: SECUKINUMAB
     Dosage: 300 MILLIGRAM, QW (1 IN 1 WEEKS)
     Route: 065
  208. COSENTYX [Suspect]
     Active Substance: SECUKINUMAB
     Dosage: 300 MILLIGRAM, QW (1 IN 1 WEEKS)
     Route: 065
  209. COSENTYX [Suspect]
     Active Substance: SECUKINUMAB
  210. COSENTYX [Suspect]
     Active Substance: SECUKINUMAB
  211. COSENTYX [Suspect]
     Active Substance: SECUKINUMAB
     Route: 058
  212. COSENTYX [Suspect]
     Active Substance: SECUKINUMAB
     Route: 058
  213. COSENTYX [Suspect]
     Active Substance: SECUKINUMAB
     Route: 058
  214. COSENTYX [Suspect]
     Active Substance: SECUKINUMAB
  215. COSENTYX [Suspect]
     Active Substance: SECUKINUMAB
     Route: 058
  216. COSENTYX [Suspect]
     Active Substance: SECUKINUMAB
  217. COSENTYX [Suspect]
     Active Substance: SECUKINUMAB
     Dosage: 30 MILLIGRAM, QW (1 EVERY 1 WEEK)
     Route: 065
  218. COSENTYX [Suspect]
     Active Substance: SECUKINUMAB
     Dosage: 30 MILLIGRAM, QW (1 EVERY 1 WEEK)
  219. COSENTYX [Suspect]
     Active Substance: SECUKINUMAB
     Dosage: 30 MILLIGRAM, QW (1 EVERY 1 WEEK)
  220. COSENTYX [Suspect]
     Active Substance: SECUKINUMAB
     Dosage: 30 MILLIGRAM, QW (1 EVERY 1 WEEK)
     Route: 065
  221. COSENTYX [Suspect]
     Active Substance: SECUKINUMAB
  222. COSENTYX [Suspect]
     Active Substance: SECUKINUMAB
     Route: 065
  223. COSENTYX [Suspect]
     Active Substance: SECUKINUMAB
     Route: 065
  224. COSENTYX [Suspect]
     Active Substance: SECUKINUMAB
  225. COSENTYX [Suspect]
     Active Substance: SECUKINUMAB
     Dosage: 30 MILLIGRAM, QD (1 IN 1 DAYS)
  226. COSENTYX [Suspect]
     Active Substance: SECUKINUMAB
     Dosage: 30 MILLIGRAM, QD (1 IN 1 DAYS)
  227. COSENTYX [Suspect]
     Active Substance: SECUKINUMAB
     Dosage: 30 MILLIGRAM, QD (1 IN 1 DAYS)
     Route: 065
  228. COSENTYX [Suspect]
     Active Substance: SECUKINUMAB
     Dosage: 30 MILLIGRAM, QD (1 IN 1 DAYS)
     Route: 065
  229. COSENTYX [Suspect]
     Active Substance: SECUKINUMAB
     Route: 058
  230. COSENTYX [Suspect]
     Active Substance: SECUKINUMAB
     Route: 058
  231. COSENTYX [Suspect]
     Active Substance: SECUKINUMAB
  232. COSENTYX [Suspect]
     Active Substance: SECUKINUMAB
  233. ERGOCALCIFEROL [Suspect]
     Active Substance: ERGOCALCIFEROL
     Indication: Product used for unknown indication
  234. ERGOCALCIFEROL [Suspect]
     Active Substance: ERGOCALCIFEROL
     Route: 065
  235. ERGOCALCIFEROL [Suspect]
     Active Substance: ERGOCALCIFEROL
     Route: 065
  236. ERGOCALCIFEROL [Suspect]
     Active Substance: ERGOCALCIFEROL
  237. METHOTREXATE [Suspect]
     Active Substance: METHOTREXATE
     Indication: Product used for unknown indication
  238. METHOTREXATE [Suspect]
     Active Substance: METHOTREXATE
  239. METHOTREXATE [Suspect]
     Active Substance: METHOTREXATE
     Route: 048
  240. METHOTREXATE [Suspect]
     Active Substance: METHOTREXATE
     Route: 048
  241. METHOTREXATE [Suspect]
     Active Substance: METHOTREXATE
  242. METHOTREXATE [Suspect]
     Active Substance: METHOTREXATE
  243. METHOTREXATE [Suspect]
     Active Substance: METHOTREXATE
     Route: 064
  244. METHOTREXATE [Suspect]
     Active Substance: METHOTREXATE
     Route: 064
  245. METHOTREXATE [Suspect]
     Active Substance: METHOTREXATE
  246. METHOTREXATE [Suspect]
     Active Substance: METHOTREXATE
     Route: 037
  247. METHOTREXATE [Suspect]
     Active Substance: METHOTREXATE
  248. METHOTREXATE [Suspect]
     Active Substance: METHOTREXATE
     Route: 037
  249. ALISKIREN [Suspect]
     Active Substance: ALISKIREN
     Indication: Hypertension
     Dosage: 300 MILLIGRAM, QD (1 IN 1 DAYS)
     Route: 048
  250. ALISKIREN [Suspect]
     Active Substance: ALISKIREN
     Indication: Microalbuminuria
     Dosage: 300 MILLIGRAM, QD (1 IN 1 DAYS)
     Route: 048
  251. ALISKIREN [Suspect]
     Active Substance: ALISKIREN
     Indication: Off label use
     Dosage: 300 MILLIGRAM, QD (1 IN 1 DAYS)
  252. ALISKIREN [Suspect]
     Active Substance: ALISKIREN
     Dosage: 300 MILLIGRAM, QD (1 IN 1 DAYS)
  253. ALISKIREN [Suspect]
     Active Substance: ALISKIREN
     Dosage: 150 MILLIGRAM, QD (1 IN 24 HOURS)
     Route: 065
  254. ALISKIREN [Suspect]
     Active Substance: ALISKIREN
     Dosage: 150 MILLIGRAM, QD (1 IN 24 HOURS)
     Route: 065
  255. ALISKIREN [Suspect]
     Active Substance: ALISKIREN
     Dosage: 150 MILLIGRAM, QD (1 IN 24 HOURS)
  256. ALISKIREN [Suspect]
     Active Substance: ALISKIREN
     Dosage: 150 MILLIGRAM, QD (1 IN 24 HOURS)
  257. ALISKIREN [Suspect]
     Active Substance: ALISKIREN
     Dosage: 300 MILLIGRAM, QD (1 IN 1 DAYS)
     Route: 065
  258. ALISKIREN [Suspect]
     Active Substance: ALISKIREN
     Dosage: 300 MILLIGRAM, QD (1 IN 1 DAYS)
     Route: 065
  259. ALISKIREN [Suspect]
     Active Substance: ALISKIREN
     Dosage: 300 MILLIGRAM, QD (1 IN 1 DAYS)
  260. ALISKIREN [Suspect]
     Active Substance: ALISKIREN
     Dosage: 300 MILLIGRAM, QD (1 IN 1 DAYS)
  261. ALISKIREN [Suspect]
     Active Substance: ALISKIREN
     Dosage: 1500 MILLIGRAM, QD (1 IN 24 HOURS) TWO ADMINISTERED
     Route: 065
  262. ALISKIREN [Suspect]
     Active Substance: ALISKIREN
     Dosage: 1500 MILLIGRAM, QD (1 IN 24 HOURS) TWO ADMINISTERED
     Route: 065
  263. ALISKIREN [Suspect]
     Active Substance: ALISKIREN
     Dosage: 1500 MILLIGRAM, QD (1 IN 24 HOURS) TWO ADMINISTERED
  264. ALISKIREN [Suspect]
     Active Substance: ALISKIREN
     Dosage: 1500 MILLIGRAM, QD (1 IN 24 HOURS) TWO ADMINISTERED
  265. ALISKIREN [Suspect]
     Active Substance: ALISKIREN
     Dosage: 300 MILLIGRAM, QD (1 IN 24 HOURS) THREE ADMINISTERED
  266. ALISKIREN [Suspect]
     Active Substance: ALISKIREN
     Dosage: 300 MILLIGRAM, QD (1 IN 24 HOURS) THREE ADMINISTERED
  267. ALISKIREN [Suspect]
     Active Substance: ALISKIREN
     Dosage: 300 MILLIGRAM, QD (1 IN 24 HOURS) THREE ADMINISTERED
     Route: 065
  268. ALISKIREN [Suspect]
     Active Substance: ALISKIREN
     Dosage: 300 MILLIGRAM, QD (1 IN 24 HOURS) THREE ADMINISTERED
     Route: 065
  269. JANUVIA [Suspect]
     Active Substance: SITAGLIPTIN PHOSPHATE
     Indication: Product used for unknown indication
     Dosage: 100 MILLIGRAM, QD (1 IN 1 DAYS)
  270. JANUVIA [Suspect]
     Active Substance: SITAGLIPTIN PHOSPHATE
     Dosage: 100 MILLIGRAM, QD (1 IN 1 DAYS)
     Route: 048
  271. JANUVIA [Suspect]
     Active Substance: SITAGLIPTIN PHOSPHATE
     Dosage: 100 MILLIGRAM, QD (1 IN 1 DAYS)
     Route: 048
  272. JANUVIA [Suspect]
     Active Substance: SITAGLIPTIN PHOSPHATE
     Dosage: 100 MILLIGRAM, QD (1 IN 1 DAYS)
  273. ALTACE [Suspect]
     Active Substance: RAMIPRIL
     Indication: Product used for unknown indication
     Route: 065
  274. ALTACE [Suspect]
     Active Substance: RAMIPRIL
  275. ALTACE [Suspect]
     Active Substance: RAMIPRIL
  276. ALTACE [Suspect]
     Active Substance: RAMIPRIL
     Route: 065
  277. ALTACE [Suspect]
     Active Substance: RAMIPRIL
     Route: 048
  278. ALTACE [Suspect]
     Active Substance: RAMIPRIL
  279. ALTACE [Suspect]
     Active Substance: RAMIPRIL
  280. ALTACE [Suspect]
     Active Substance: RAMIPRIL
     Route: 048
  281. ATACAND [Suspect]
     Active Substance: CANDESARTAN CILEXETIL
     Indication: Hypertension
     Route: 065
  282. ATACAND [Suspect]
     Active Substance: CANDESARTAN CILEXETIL
  283. ATACAND [Suspect]
     Active Substance: CANDESARTAN CILEXETIL
  284. ATACAND [Suspect]
     Active Substance: CANDESARTAN CILEXETIL
     Route: 065
  285. ATACAND [Suspect]
     Active Substance: CANDESARTAN CILEXETIL
     Route: 048
  286. ATACAND [Suspect]
     Active Substance: CANDESARTAN CILEXETIL
  287. ATACAND [Suspect]
     Active Substance: CANDESARTAN CILEXETIL
  288. ATACAND [Suspect]
     Active Substance: CANDESARTAN CILEXETIL
     Route: 048
  289. GLICLAZIDE [Suspect]
     Active Substance: GLICLAZIDE
     Indication: Blood pressure management
     Route: 065
  290. GLICLAZIDE [Suspect]
     Active Substance: GLICLAZIDE
     Indication: Diabetes mellitus
  291. GLICLAZIDE [Suspect]
     Active Substance: GLICLAZIDE
     Indication: Blood pressure abnormal
  292. GLICLAZIDE [Suspect]
     Active Substance: GLICLAZIDE
     Route: 065
  293. GLICLAZIDE [Suspect]
     Active Substance: GLICLAZIDE
     Route: 065
  294. GLICLAZIDE [Suspect]
     Active Substance: GLICLAZIDE
  295. GLICLAZIDE [Suspect]
     Active Substance: GLICLAZIDE
  296. GLICLAZIDE [Suspect]
     Active Substance: GLICLAZIDE
     Route: 065
  297. GLICLAZIDE [Suspect]
     Active Substance: GLICLAZIDE
     Route: 048
  298. GLICLAZIDE [Suspect]
     Active Substance: GLICLAZIDE
     Route: 048
  299. GLICLAZIDE [Suspect]
     Active Substance: GLICLAZIDE
  300. GLICLAZIDE [Suspect]
     Active Substance: GLICLAZIDE
  301. GRAVOL [Suspect]
     Active Substance: DIMENHYDRINATE
     Indication: Premedication
     Dosage: 50 MILLIGRAM, QD (1 IN 24 HOURS)
  302. GRAVOL [Suspect]
     Active Substance: DIMENHYDRINATE
     Dosage: 50 MILLIGRAM, QD (1 IN 24 HOURS)
  303. GRAVOL [Suspect]
     Active Substance: DIMENHYDRINATE
     Dosage: 50 MILLIGRAM, QD (1 IN 24 HOURS)
     Route: 065
  304. GRAVOL [Suspect]
     Active Substance: DIMENHYDRINATE
     Dosage: 50 MILLIGRAM, QD (1 IN 24 HOURS)
     Route: 065
  305. GRAVOL [Suspect]
     Active Substance: DIMENHYDRINATE
     Dosage: 100 MILLIGRAM, QD (1 IN 24 HOURS)
  306. GRAVOL [Suspect]
     Active Substance: DIMENHYDRINATE
     Dosage: 100 MILLIGRAM, QD (1 IN 24 HOURS)
  307. GRAVOL [Suspect]
     Active Substance: DIMENHYDRINATE
     Dosage: 100 MILLIGRAM, QD (1 IN 24 HOURS)
     Route: 065
  308. GRAVOL [Suspect]
     Active Substance: DIMENHYDRINATE
     Dosage: 100 MILLIGRAM, QD (1 IN 24 HOURS)
     Route: 065
  309. LISINOPRIL [Suspect]
     Active Substance: LISINOPRIL
     Indication: Hypertension
  310. LISINOPRIL [Suspect]
     Active Substance: LISINOPRIL
  311. LISINOPRIL [Suspect]
     Active Substance: LISINOPRIL
     Route: 065
  312. LISINOPRIL [Suspect]
     Active Substance: LISINOPRIL
     Route: 065
  313. LISINOPRIL [Suspect]
     Active Substance: LISINOPRIL
  314. LISINOPRIL [Suspect]
     Active Substance: LISINOPRIL
  315. LISINOPRIL [Suspect]
     Active Substance: LISINOPRIL
     Route: 048
  316. LISINOPRIL [Suspect]
     Active Substance: LISINOPRIL
     Route: 048
  317. METHYLPREDNISOLONE SODIUM SUCCINATE [Suspect]
     Active Substance: METHYLPREDNISOLONE SODIUM SUCCINATE
     Indication: Premedication
     Dosage: 100 MILLIGRAM, QD ( 1 IN 24 HOURS)
     Route: 065
  318. METHYLPREDNISOLONE SODIUM SUCCINATE [Suspect]
     Active Substance: METHYLPREDNISOLONE SODIUM SUCCINATE
     Dosage: 100 MILLIGRAM, QD ( 1 IN 24 HOURS)
  319. METHYLPREDNISOLONE SODIUM SUCCINATE [Suspect]
     Active Substance: METHYLPREDNISOLONE SODIUM SUCCINATE
     Dosage: 100 MILLIGRAM, QD ( 1 IN 24 HOURS)
  320. METHYLPREDNISOLONE SODIUM SUCCINATE [Suspect]
     Active Substance: METHYLPREDNISOLONE SODIUM SUCCINATE
     Dosage: 100 MILLIGRAM, QD ( 1 IN 24 HOURS)
     Route: 065
  321. METHYLPREDNISOLONE SODIUM SUCCINATE [Suspect]
     Active Substance: METHYLPREDNISOLONE SODIUM SUCCINATE
     Dosage: 100 MILLIGRAM, QD ( 1 IN 24 HOURS)
     Route: 042
  322. METHYLPREDNISOLONE SODIUM SUCCINATE [Suspect]
     Active Substance: METHYLPREDNISOLONE SODIUM SUCCINATE
     Dosage: 100 MILLIGRAM, QD ( 1 IN 24 HOURS)
  323. METHYLPREDNISOLONE SODIUM SUCCINATE [Suspect]
     Active Substance: METHYLPREDNISOLONE SODIUM SUCCINATE
     Dosage: 100 MILLIGRAM, QD ( 1 IN 24 HOURS)
  324. METHYLPREDNISOLONE SODIUM SUCCINATE [Suspect]
     Active Substance: METHYLPREDNISOLONE SODIUM SUCCINATE
     Dosage: 100 MILLIGRAM, QD ( 1 IN 24 HOURS)
     Route: 042
  325. PREDNISONE [Suspect]
     Active Substance: PREDNISONE
     Indication: Product used for unknown indication
  326. PREDNISONE [Suspect]
     Active Substance: PREDNISONE
     Route: 065
  327. PREDNISONE [Suspect]
     Active Substance: PREDNISONE
     Route: 065
  328. PREDNISONE [Suspect]
     Active Substance: PREDNISONE
  329. PROCHLORPERAZINE [Suspect]
     Active Substance: PROCHLORPERAZINE
     Indication: Vomiting
  330. PROCHLORPERAZINE [Suspect]
     Active Substance: PROCHLORPERAZINE
     Route: 065
  331. PROCHLORPERAZINE [Suspect]
     Active Substance: PROCHLORPERAZINE
     Route: 065
  332. PROCHLORPERAZINE [Suspect]
     Active Substance: PROCHLORPERAZINE
  333. RITUXIMAB [Suspect]
     Active Substance: RITUXIMAB
     Indication: Rheumatoid arthritis
     Route: 065
  334. RITUXIMAB [Suspect]
     Active Substance: RITUXIMAB
     Indication: Sjogren^s syndrome
  335. RITUXIMAB [Suspect]
     Active Substance: RITUXIMAB
  336. RITUXIMAB [Suspect]
     Active Substance: RITUXIMAB
     Route: 065
  337. RITUXIMAB [Suspect]
     Active Substance: RITUXIMAB
     Route: 042
  338. RITUXIMAB [Suspect]
     Active Substance: RITUXIMAB
  339. RITUXIMAB [Suspect]
     Active Substance: RITUXIMAB
  340. RITUXIMAB [Suspect]
     Active Substance: RITUXIMAB
     Route: 042
  341. ALISKIREN HEMIFUMARATE [Suspect]
     Active Substance: ALISKIREN HEMIFUMARATE
     Indication: Microalbuminuria
     Dosage: 300 MILLIGRAM, QD (1 EVERY 1 DAY)
     Route: 048
  342. ALISKIREN HEMIFUMARATE [Suspect]
     Active Substance: ALISKIREN HEMIFUMARATE
     Indication: Hypertension
     Dosage: 300 MILLIGRAM, QD (1 EVERY 1 DAY)
  343. ALISKIREN HEMIFUMARATE [Suspect]
     Active Substance: ALISKIREN HEMIFUMARATE
     Indication: Off label use
     Dosage: 300 MILLIGRAM, QD (1 EVERY 1 DAY)
  344. ALISKIREN HEMIFUMARATE [Suspect]
     Active Substance: ALISKIREN HEMIFUMARATE
     Dosage: 300 MILLIGRAM, QD (1 EVERY 1 DAY)
     Route: 048
  345. ALISKIREN HEMIFUMARATE [Suspect]
     Active Substance: ALISKIREN HEMIFUMARATE
     Dosage: 150 MILLIGRAM, QD (1 EVERY 1 DAY)
     Route: 048
  346. ALISKIREN HEMIFUMARATE [Suspect]
     Active Substance: ALISKIREN HEMIFUMARATE
     Dosage: 150 MILLIGRAM, QD (1 EVERY 1 DAY)
  347. ALISKIREN HEMIFUMARATE [Suspect]
     Active Substance: ALISKIREN HEMIFUMARATE
     Dosage: 150 MILLIGRAM, QD (1 EVERY 1 DAY)
  348. ALISKIREN HEMIFUMARATE [Suspect]
     Active Substance: ALISKIREN HEMIFUMARATE
     Dosage: 150 MILLIGRAM, QD (1 EVERY 1 DAY)
     Route: 048
  349. ALISKIREN HEMIFUMARATE [Suspect]
     Active Substance: ALISKIREN HEMIFUMARATE
     Dosage: 1500 MILLIGRAM, QD (1 EVERY 1 DAY)
  350. ALISKIREN HEMIFUMARATE [Suspect]
     Active Substance: ALISKIREN HEMIFUMARATE
     Dosage: 1500 MILLIGRAM, QD (1 EVERY 1 DAY)
  351. ALISKIREN HEMIFUMARATE [Suspect]
     Active Substance: ALISKIREN HEMIFUMARATE
     Dosage: 1500 MILLIGRAM, QD (1 EVERY 1 DAY)
     Route: 048
  352. ALISKIREN HEMIFUMARATE [Suspect]
     Active Substance: ALISKIREN HEMIFUMARATE
     Dosage: 1500 MILLIGRAM, QD (1 EVERY 1 DAY)
     Route: 048
  353. ALISKIREN HEMIFUMARATE [Suspect]
     Active Substance: ALISKIREN HEMIFUMARATE
  354. ALISKIREN HEMIFUMARATE [Suspect]
     Active Substance: ALISKIREN HEMIFUMARATE
  355. ALISKIREN HEMIFUMARATE [Suspect]
     Active Substance: ALISKIREN HEMIFUMARATE
     Route: 048
  356. ALISKIREN HEMIFUMARATE [Suspect]
     Active Substance: ALISKIREN HEMIFUMARATE
     Route: 048
  357. ESOMEPRAZOLE [Suspect]
     Active Substance: ESOMEPRAZOLE
     Indication: Product used for unknown indication
  358. ESOMEPRAZOLE [Suspect]
     Active Substance: ESOMEPRAZOLE
  359. ESOMEPRAZOLE [Suspect]
     Active Substance: ESOMEPRAZOLE
     Route: 048
  360. ESOMEPRAZOLE [Suspect]
     Active Substance: ESOMEPRAZOLE
     Route: 048
  361. ESOMEPRAZOLE [Suspect]
     Active Substance: ESOMEPRAZOLE
  362. ESOMEPRAZOLE [Suspect]
     Active Substance: ESOMEPRAZOLE
  363. ESOMEPRAZOLE [Suspect]
     Active Substance: ESOMEPRAZOLE
     Route: 042
  364. ESOMEPRAZOLE [Suspect]
     Active Substance: ESOMEPRAZOLE
     Route: 042
  365. ESOMEPRAZOLE [Suspect]
     Active Substance: ESOMEPRAZOLE
  366. ESOMEPRAZOLE [Suspect]
     Active Substance: ESOMEPRAZOLE
     Route: 048
  367. ESOMEPRAZOLE [Suspect]
     Active Substance: ESOMEPRAZOLE
  368. ESOMEPRAZOLE [Suspect]
     Active Substance: ESOMEPRAZOLE
     Route: 048
  369. ESOMEPRAZOLE MAGNESIUM\NAPROXEN [Suspect]
     Active Substance: ESOMEPRAZOLE MAGNESIUM\NAPROXEN
     Indication: Product used for unknown indication
  370. ESOMEPRAZOLE MAGNESIUM\NAPROXEN [Suspect]
     Active Substance: ESOMEPRAZOLE MAGNESIUM\NAPROXEN
     Route: 048
  371. ESOMEPRAZOLE MAGNESIUM\NAPROXEN [Suspect]
     Active Substance: ESOMEPRAZOLE MAGNESIUM\NAPROXEN
     Route: 048
  372. ESOMEPRAZOLE MAGNESIUM\NAPROXEN [Suspect]
     Active Substance: ESOMEPRAZOLE MAGNESIUM\NAPROXEN
  373. GLICLAZIDE [Suspect]
     Active Substance: GLICLAZIDE
     Indication: Diabetes mellitus
  374. GLICLAZIDE [Suspect]
     Active Substance: GLICLAZIDE
     Indication: Blood pressure measurement
     Route: 065
  375. GLICLAZIDE [Suspect]
     Active Substance: GLICLAZIDE
     Route: 065
  376. GLICLAZIDE [Suspect]
     Active Substance: GLICLAZIDE
  377. RAMIPRIL [Suspect]
     Active Substance: RAMIPRIL
     Indication: Product used for unknown indication
  378. RAMIPRIL [Suspect]
     Active Substance: RAMIPRIL
     Route: 048
  379. RAMIPRIL [Suspect]
     Active Substance: RAMIPRIL
     Route: 048
  380. RAMIPRIL [Suspect]
     Active Substance: RAMIPRIL
  381. PEDIAPRED [Suspect]
     Active Substance: PREDNISOLONE SODIUM PHOSPHATE
     Indication: Product used for unknown indication
  382. PEDIAPRED [Suspect]
     Active Substance: PREDNISOLONE SODIUM PHOSPHATE
     Route: 065
  383. PEDIAPRED [Suspect]
     Active Substance: PREDNISOLONE SODIUM PHOSPHATE
     Route: 065
  384. PEDIAPRED [Suspect]
     Active Substance: PREDNISOLONE SODIUM PHOSPHATE
  385. MORPHINE SULFATE [Suspect]
     Active Substance: MORPHINE SULFATE
     Indication: Product used for unknown indication
  386. MORPHINE SULFATE [Suspect]
     Active Substance: MORPHINE SULFATE
     Route: 030
  387. MORPHINE SULFATE [Suspect]
     Active Substance: MORPHINE SULFATE
     Route: 030
  388. MORPHINE SULFATE [Suspect]
     Active Substance: MORPHINE SULFATE
  389. DIPHENHYDRAMINE HYDROCHLORIDE [Suspect]
     Active Substance: DIPHENHYDRAMINE HYDROCHLORIDE
     Indication: Premedication
     Dosage: 50 MILLIGRAM, QD (1 IN 1 D)
  390. DIPHENHYDRAMINE HYDROCHLORIDE [Suspect]
     Active Substance: DIPHENHYDRAMINE HYDROCHLORIDE
     Dosage: 50 MILLIGRAM, QD (1 IN 1 D)
     Route: 048
  391. DIPHENHYDRAMINE HYDROCHLORIDE [Suspect]
     Active Substance: DIPHENHYDRAMINE HYDROCHLORIDE
     Dosage: 50 MILLIGRAM, QD (1 IN 1 D)
     Route: 048
  392. DIPHENHYDRAMINE HYDROCHLORIDE [Suspect]
     Active Substance: DIPHENHYDRAMINE HYDROCHLORIDE
     Dosage: 50 MILLIGRAM, QD (1 IN 1 D)
  393. ZESTRIL [Suspect]
     Active Substance: LISINOPRIL
     Indication: Hypertension
  394. ZESTRIL [Suspect]
     Active Substance: LISINOPRIL
     Route: 065
  395. ZESTRIL [Suspect]
     Active Substance: LISINOPRIL
     Route: 065
  396. ZESTRIL [Suspect]
     Active Substance: LISINOPRIL
  397. ASPIRIN [Suspect]
     Active Substance: ASPIRIN
     Indication: Product used for unknown indication
  398. ASPIRIN [Suspect]
     Active Substance: ASPIRIN
     Route: 065
  399. ASPIRIN [Suspect]
     Active Substance: ASPIRIN
     Route: 065
  400. ASPIRIN [Suspect]
     Active Substance: ASPIRIN
  401. IRBESARTAN [Suspect]
     Active Substance: IRBESARTAN
     Indication: Hypertension
     Dosage: 1 DOSAGE FORM, QD (1 IN 1 D)
  402. IRBESARTAN [Suspect]
     Active Substance: IRBESARTAN
     Dosage: 1 DOSAGE FORM, QD (1 IN 1 D)
  403. IRBESARTAN [Suspect]
     Active Substance: IRBESARTAN
     Dosage: 1 DOSAGE FORM, QD (1 IN 1 D)
     Route: 048
  404. IRBESARTAN [Suspect]
     Active Substance: IRBESARTAN
     Dosage: 1 DOSAGE FORM, QD (1 IN 1 D)
     Route: 048
  405. IRBESARTAN [Suspect]
     Active Substance: IRBESARTAN
     Dosage: 300 MILLIGRAM, QD (1 IN 1 D)
  406. IRBESARTAN [Suspect]
     Active Substance: IRBESARTAN
     Dosage: 300 MILLIGRAM, QD (1 IN 1 D)
  407. IRBESARTAN [Suspect]
     Active Substance: IRBESARTAN
     Dosage: 300 MILLIGRAM, QD (1 IN 1 D)
     Route: 048
  408. IRBESARTAN [Suspect]
     Active Substance: IRBESARTAN
     Dosage: 300 MILLIGRAM, QD (1 IN 1 D)
     Route: 048
  409. IRBESARTAN [Suspect]
     Active Substance: IRBESARTAN
     Dosage: 1 DOSAGE FORM, QD (1 IN 1 D) FOUR ADMINISTERED
  410. IRBESARTAN [Suspect]
     Active Substance: IRBESARTAN
     Dosage: 1 DOSAGE FORM, QD (1 IN 1 D) FOUR ADMINISTERED
  411. IRBESARTAN [Suspect]
     Active Substance: IRBESARTAN
     Dosage: 1 DOSAGE FORM, QD (1 IN 1 D) FOUR ADMINISTERED
     Route: 048
  412. IRBESARTAN [Suspect]
     Active Substance: IRBESARTAN
     Dosage: 1 DOSAGE FORM, QD (1 IN 1 D) FOUR ADMINISTERED
     Route: 048
  413. IRBESARTAN [Suspect]
     Active Substance: IRBESARTAN
     Dosage: 300 MILLIGRAM, QD (1 IN 1 D) FOUR ADMINISTERED
  414. IRBESARTAN [Suspect]
     Active Substance: IRBESARTAN
     Dosage: 300 MILLIGRAM, QD (1 IN 1 D) FOUR ADMINISTERED
  415. IRBESARTAN [Suspect]
     Active Substance: IRBESARTAN
     Dosage: 300 MILLIGRAM, QD (1 IN 1 D) FOUR ADMINISTERED
     Route: 048
  416. IRBESARTAN [Suspect]
     Active Substance: IRBESARTAN
     Dosage: 300 MILLIGRAM, QD (1 IN 1 D) FOUR ADMINISTERED
     Route: 048
  417. IRBESARTAN [Suspect]
     Active Substance: IRBESARTAN
  418. IRBESARTAN [Suspect]
     Active Substance: IRBESARTAN
     Route: 048
  419. IRBESARTAN [Suspect]
     Active Substance: IRBESARTAN
  420. IRBESARTAN [Suspect]
     Active Substance: IRBESARTAN
     Route: 048
  421. METHYLPREDNISOLONE SODIUM SUCCINATE [Suspect]
     Active Substance: METHYLPREDNISOLONE SODIUM SUCCINATE
     Indication: Premedication
     Dosage: 100 MILLIGRAM QD (1 IN 1 D)
  422. METHYLPREDNISOLONE SODIUM SUCCINATE [Suspect]
     Active Substance: METHYLPREDNISOLONE SODIUM SUCCINATE
     Dosage: 100 MILLIGRAM QD (1 IN 1 D)
     Route: 042
  423. METHYLPREDNISOLONE SODIUM SUCCINATE [Suspect]
     Active Substance: METHYLPREDNISOLONE SODIUM SUCCINATE
     Dosage: 100 MILLIGRAM QD (1 IN 1 D)
     Route: 042
  424. METHYLPREDNISOLONE SODIUM SUCCINATE [Suspect]
     Active Substance: METHYLPREDNISOLONE SODIUM SUCCINATE
     Dosage: 100 MILLIGRAM QD (1 IN 1 D)
  425. ONDANSETRON HYDROCHLORIDE [Suspect]
     Active Substance: ONDANSETRON HYDROCHLORIDE
     Indication: Product used for unknown indication
  426. ONDANSETRON HYDROCHLORIDE [Suspect]
     Active Substance: ONDANSETRON HYDROCHLORIDE
     Route: 065
  427. ONDANSETRON HYDROCHLORIDE [Suspect]
     Active Substance: ONDANSETRON HYDROCHLORIDE
     Route: 065
  428. ONDANSETRON HYDROCHLORIDE [Suspect]
     Active Substance: ONDANSETRON HYDROCHLORIDE
  429. LEVOTHYROXINE SODIUM [Suspect]
     Active Substance: LEVOTHYROXINE SODIUM
     Indication: Product used for unknown indication
  430. LEVOTHYROXINE SODIUM [Suspect]
     Active Substance: LEVOTHYROXINE SODIUM
     Route: 065
  431. LEVOTHYROXINE SODIUM [Suspect]
     Active Substance: LEVOTHYROXINE SODIUM
     Route: 065
  432. LEVOTHYROXINE SODIUM [Suspect]
     Active Substance: LEVOTHYROXINE SODIUM
  433. MORPHINE SULFATE [Suspect]
     Active Substance: MORPHINE SULFATE
     Indication: Product used for unknown indication
  434. MORPHINE SULFATE [Suspect]
     Active Substance: MORPHINE SULFATE
     Route: 030
  435. MORPHINE SULFATE [Suspect]
     Active Substance: MORPHINE SULFATE
     Route: 030
  436. MORPHINE SULFATE [Suspect]
     Active Substance: MORPHINE SULFATE
  437. METFORMIN [Suspect]
     Active Substance: METFORMIN HYDROCHLORIDE
     Indication: Product used for unknown indication
     Dosage: 850 MILLIGRAM, QID (1 IN 8 HOURS)
  438. METFORMIN [Suspect]
     Active Substance: METFORMIN HYDROCHLORIDE
     Dosage: 850 MILLIGRAM, QID (1 IN 8 HOURS)
  439. METFORMIN [Suspect]
     Active Substance: METFORMIN HYDROCHLORIDE
     Dosage: 850 MILLIGRAM, QID (1 IN 8 HOURS)
     Route: 048
  440. METFORMIN [Suspect]
     Active Substance: METFORMIN HYDROCHLORIDE
     Dosage: 850 MILLIGRAM, QID (1 IN 8 HOURS)
     Route: 048
  441. METFORMIN [Suspect]
     Active Substance: METFORMIN HYDROCHLORIDE
  442. METFORMIN [Suspect]
     Active Substance: METFORMIN HYDROCHLORIDE
  443. METFORMIN [Suspect]
     Active Substance: METFORMIN HYDROCHLORIDE
     Route: 048
  444. METFORMIN [Suspect]
     Active Substance: METFORMIN HYDROCHLORIDE
     Route: 048
  445. ESOMEPRAZOLE MAGNESIUM [Suspect]
     Active Substance: ESOMEPRAZOLE MAGNESIUM
     Indication: Product used for unknown indication
  446. ESOMEPRAZOLE MAGNESIUM [Suspect]
     Active Substance: ESOMEPRAZOLE MAGNESIUM
     Route: 048
  447. ESOMEPRAZOLE MAGNESIUM [Suspect]
     Active Substance: ESOMEPRAZOLE MAGNESIUM
     Route: 048
  448. ESOMEPRAZOLE MAGNESIUM [Suspect]
     Active Substance: ESOMEPRAZOLE MAGNESIUM
  449. ZOLPIDEM [Concomitant]
     Active Substance: ZOLPIDEM TARTRATE
     Indication: Product used for unknown indication
  450. ZOLPIDEM [Concomitant]
     Active Substance: ZOLPIDEM TARTRATE
     Route: 065
  451. ZOLPIDEM [Concomitant]
     Active Substance: ZOLPIDEM TARTRATE
     Route: 065
  452. ZOLPIDEM [Concomitant]
     Active Substance: ZOLPIDEM TARTRATE
  453. ASPIRIN [Concomitant]
     Active Substance: ASPIRIN
  454. ASPIRIN [Concomitant]
     Active Substance: ASPIRIN
     Route: 065
  455. ASPIRIN [Concomitant]
     Active Substance: ASPIRIN
     Route: 065
  456. ASPIRIN [Concomitant]
     Active Substance: ASPIRIN
  457. ACITRETIN [Concomitant]
     Active Substance: ACITRETIN
     Indication: Microalbuminuria
  458. ACITRETIN [Concomitant]
     Active Substance: ACITRETIN
     Indication: Hypertension
     Route: 065
  459. ACITRETIN [Concomitant]
     Active Substance: ACITRETIN
     Route: 065
  460. ACITRETIN [Concomitant]
     Active Substance: ACITRETIN
  461. AMEVIVE [Concomitant]
     Active Substance: ALEFACEPT
     Indication: Microalbuminuria
  462. AMEVIVE [Concomitant]
     Active Substance: ALEFACEPT
     Indication: Hypertension
  463. AMEVIVE [Concomitant]
     Active Substance: ALEFACEPT
     Route: 030
  464. AMEVIVE [Concomitant]
     Active Substance: ALEFACEPT
     Route: 030
  465. AMEVIVE [Concomitant]
     Active Substance: ALEFACEPT
  466. AMEVIVE [Concomitant]
     Active Substance: ALEFACEPT
  467. AMEVIVE [Concomitant]
     Active Substance: ALEFACEPT
     Route: 065
  468. AMEVIVE [Concomitant]
     Active Substance: ALEFACEPT
     Route: 065
  469. COAL TAR [Concomitant]
     Active Substance: COAL TAR
  470. COAL TAR [Concomitant]
     Active Substance: COAL TAR
     Route: 065
  471. COAL TAR [Concomitant]
     Active Substance: COAL TAR
     Route: 065
  472. COAL TAR [Concomitant]
     Active Substance: COAL TAR
  473. CYMBALTA [Concomitant]
     Active Substance: DULOXETINE HYDROCHLORIDE
  474. CYMBALTA [Concomitant]
     Active Substance: DULOXETINE HYDROCHLORIDE
     Route: 065
  475. CYMBALTA [Concomitant]
     Active Substance: DULOXETINE HYDROCHLORIDE
     Route: 065
  476. CYMBALTA [Concomitant]
     Active Substance: DULOXETINE HYDROCHLORIDE
  477. DOVONEX [Concomitant]
     Active Substance: CALCIPOTRIENE
  478. DOVONEX [Concomitant]
     Active Substance: CALCIPOTRIENE
     Route: 065
  479. DOVONEX [Concomitant]
     Active Substance: CALCIPOTRIENE
     Route: 065
  480. DOVONEX [Concomitant]
     Active Substance: CALCIPOTRIENE
  481. JANUVIA [Concomitant]
     Active Substance: SITAGLIPTIN PHOSPHATE
  482. JANUVIA [Concomitant]
     Active Substance: SITAGLIPTIN PHOSPHATE
     Route: 065
  483. JANUVIA [Concomitant]
     Active Substance: SITAGLIPTIN PHOSPHATE
     Route: 065
  484. JANUVIA [Concomitant]
     Active Substance: SITAGLIPTIN PHOSPHATE
  485. PANTOPRAZOLE SODIUM [Concomitant]
     Active Substance: PANTOPRAZOLE SODIUM
  486. PANTOPRAZOLE SODIUM [Concomitant]
     Active Substance: PANTOPRAZOLE SODIUM
     Route: 065
  487. PANTOPRAZOLE SODIUM [Concomitant]
     Active Substance: PANTOPRAZOLE SODIUM
     Route: 065
  488. PANTOPRAZOLE SODIUM [Concomitant]
     Active Substance: PANTOPRAZOLE SODIUM
  489. STELARA [Concomitant]
     Active Substance: USTEKINUMAB
  490. STELARA [Concomitant]
     Active Substance: USTEKINUMAB
     Route: 058
  491. STELARA [Concomitant]
     Active Substance: USTEKINUMAB
     Route: 058
  492. STELARA [Concomitant]
     Active Substance: USTEKINUMAB
  493. SYNTHROID [Concomitant]
     Active Substance: LEVOTHYROXINE SODIUM
  494. SYNTHROID [Concomitant]
     Active Substance: LEVOTHYROXINE SODIUM
     Route: 065
  495. SYNTHROID [Concomitant]
     Active Substance: LEVOTHYROXINE SODIUM
     Route: 065
  496. SYNTHROID [Concomitant]
     Active Substance: LEVOTHYROXINE SODIUM
  497. ZOLPIDEM [Concomitant]
     Active Substance: ZOLPIDEM TARTRATE
  498. ZOLPIDEM [Concomitant]
     Active Substance: ZOLPIDEM TARTRATE
     Route: 065
  499. ZOLPIDEM [Concomitant]
     Active Substance: ZOLPIDEM TARTRATE
     Route: 065
  500. ZOLPIDEM [Concomitant]
     Active Substance: ZOLPIDEM TARTRATE
  501. AVAPRO [Concomitant]
     Active Substance: IRBESARTAN
  502. AVAPRO [Concomitant]
     Active Substance: IRBESARTAN
     Route: 065
  503. AVAPRO [Concomitant]
     Active Substance: IRBESARTAN
     Route: 065
  504. AVAPRO [Concomitant]
     Active Substance: IRBESARTAN
  505. ESOMEPRAZOLE MAGNESIUM [Concomitant]
     Active Substance: ESOMEPRAZOLE MAGNESIUM
     Route: 065
  506. ESOMEPRAZOLE MAGNESIUM [Concomitant]
     Active Substance: ESOMEPRAZOLE MAGNESIUM
  507. ESOMEPRAZOLE MAGNESIUM [Concomitant]
     Active Substance: ESOMEPRAZOLE MAGNESIUM
  508. ESOMEPRAZOLE MAGNESIUM [Concomitant]
     Active Substance: ESOMEPRAZOLE MAGNESIUM
     Route: 065
  509. ESOMEPRAZOLE MAGNESIUM [Concomitant]
     Active Substance: ESOMEPRAZOLE MAGNESIUM
     Route: 065
  510. ESOMEPRAZOLE MAGNESIUM [Concomitant]
     Active Substance: ESOMEPRAZOLE MAGNESIUM
  511. ESOMEPRAZOLE MAGNESIUM [Concomitant]
     Active Substance: ESOMEPRAZOLE MAGNESIUM
  512. ESOMEPRAZOLE MAGNESIUM [Concomitant]
     Active Substance: ESOMEPRAZOLE MAGNESIUM
     Route: 065
  513. PANTOPRAZOLE SODIUM [Concomitant]
     Active Substance: PANTOPRAZOLE SODIUM
  514. PANTOPRAZOLE SODIUM [Concomitant]
     Active Substance: PANTOPRAZOLE SODIUM
     Route: 065
  515. PANTOPRAZOLE SODIUM [Concomitant]
     Active Substance: PANTOPRAZOLE SODIUM
     Route: 065
  516. PANTOPRAZOLE SODIUM [Concomitant]
     Active Substance: PANTOPRAZOLE SODIUM
  517. ROSUVASTATIN CALCIUM [Concomitant]
     Active Substance: ROSUVASTATIN CALCIUM
     Route: 065
  518. ROSUVASTATIN CALCIUM [Concomitant]
     Active Substance: ROSUVASTATIN CALCIUM
  519. ROSUVASTATIN CALCIUM [Concomitant]
     Active Substance: ROSUVASTATIN CALCIUM
  520. ROSUVASTATIN CALCIUM [Concomitant]
     Active Substance: ROSUVASTATIN CALCIUM
     Route: 065
  521. ROSUVASTATIN CALCIUM [Concomitant]
     Active Substance: ROSUVASTATIN CALCIUM
     Route: 058
  522. ROSUVASTATIN CALCIUM [Concomitant]
     Active Substance: ROSUVASTATIN CALCIUM
  523. ROSUVASTATIN CALCIUM [Concomitant]
     Active Substance: ROSUVASTATIN CALCIUM
  524. ROSUVASTATIN CALCIUM [Concomitant]
     Active Substance: ROSUVASTATIN CALCIUM
     Route: 058
  525. CYANOCOBALAMIN [Concomitant]
     Active Substance: CYANOCOBALAMIN
  526. CYANOCOBALAMIN [Concomitant]
     Active Substance: CYANOCOBALAMIN
     Route: 065
  527. CYANOCOBALAMIN [Concomitant]
     Active Substance: CYANOCOBALAMIN
     Route: 065
  528. CYANOCOBALAMIN [Concomitant]
     Active Substance: CYANOCOBALAMIN
  529. DOMPERIDONE MALEATE [Concomitant]
     Active Substance: DOMPERIDONE MALEATE
  530. DOMPERIDONE MALEATE [Concomitant]
     Active Substance: DOMPERIDONE MALEATE
     Route: 065
  531. DOMPERIDONE MALEATE [Concomitant]
     Active Substance: DOMPERIDONE MALEATE
     Route: 065
  532. DOMPERIDONE MALEATE [Concomitant]
     Active Substance: DOMPERIDONE MALEATE
  533. LEVOTHYROXINE [Concomitant]
     Active Substance: LEVOTHYROXINE
  534. LEVOTHYROXINE [Concomitant]
     Active Substance: LEVOTHYROXINE
     Route: 065
  535. LEVOTHYROXINE [Concomitant]
     Active Substance: LEVOTHYROXINE
     Route: 065
  536. LEVOTHYROXINE [Concomitant]
     Active Substance: LEVOTHYROXINE
  537. HUMALOG [Concomitant]
     Active Substance: INSULIN LISPRO
  538. HUMALOG [Concomitant]
     Active Substance: INSULIN LISPRO
     Route: 065
  539. HUMALOG [Concomitant]
     Active Substance: INSULIN LISPRO
     Route: 065
  540. HUMALOG [Concomitant]
     Active Substance: INSULIN LISPRO
  541. HYDROCHLOROTHIAZIDE [Concomitant]
     Active Substance: HYDROCHLOROTHIAZIDE
  542. HYDROCHLOROTHIAZIDE [Concomitant]
     Active Substance: HYDROCHLOROTHIAZIDE
     Route: 065
  543. HYDROCHLOROTHIAZIDE [Concomitant]
     Active Substance: HYDROCHLOROTHIAZIDE
     Route: 065
  544. HYDROCHLOROTHIAZIDE [Concomitant]
     Active Substance: HYDROCHLOROTHIAZIDE
  545. LANTUS [Concomitant]
     Active Substance: INSULIN GLARGINE
  546. LANTUS [Concomitant]
     Active Substance: INSULIN GLARGINE
     Route: 058
  547. LANTUS [Concomitant]
     Active Substance: INSULIN GLARGINE
     Route: 058
  548. LANTUS [Concomitant]
     Active Substance: INSULIN GLARGINE
  549. LEVEMIR [Concomitant]
     Active Substance: INSULIN DETEMIR
  550. LEVEMIR [Concomitant]
     Active Substance: INSULIN DETEMIR
     Route: 058
  551. LEVEMIR [Concomitant]
     Active Substance: INSULIN DETEMIR
     Route: 058
  552. LEVEMIR [Concomitant]
     Active Substance: INSULIN DETEMIR
  553. MEDROL [Concomitant]
     Active Substance: METHYLPREDNISOLONE
  554. MEDROL [Concomitant]
     Active Substance: METHYLPREDNISOLONE
     Route: 065
  555. MEDROL [Concomitant]
     Active Substance: METHYLPREDNISOLONE
     Route: 065
  556. MEDROL [Concomitant]
     Active Substance: METHYLPREDNISOLONE
  557. TELMISARTAN [Concomitant]
     Active Substance: TELMISARTAN
  558. TELMISARTAN [Concomitant]
     Active Substance: TELMISARTAN
     Route: 065
  559. TELMISARTAN [Concomitant]
     Active Substance: TELMISARTAN
     Route: 065
  560. TELMISARTAN [Concomitant]
     Active Substance: TELMISARTAN
  561. TYLENOL [Concomitant]
     Active Substance: ACETAMINOPHEN
  562. TYLENOL [Concomitant]
     Active Substance: ACETAMINOPHEN
     Route: 065
  563. TYLENOL [Concomitant]
     Active Substance: ACETAMINOPHEN
     Route: 065
  564. TYLENOL [Concomitant]
     Active Substance: ACETAMINOPHEN
  565. DEPO-MEDROL [Concomitant]
     Active Substance: METHYLPREDNISOLONE ACETATE
  566. DEPO-MEDROL [Concomitant]
     Active Substance: METHYLPREDNISOLONE ACETATE
     Route: 014
  567. DEPO-MEDROL [Concomitant]
     Active Substance: METHYLPREDNISOLONE ACETATE
     Route: 014
  568. DEPO-MEDROL [Concomitant]
     Active Substance: METHYLPREDNISOLONE ACETATE
  569. DOMPERIDONE [Concomitant]
     Active Substance: DOMPERIDONE
  570. DOMPERIDONE [Concomitant]
     Active Substance: DOMPERIDONE
     Route: 065
  571. DOMPERIDONE [Concomitant]
     Active Substance: DOMPERIDONE
     Route: 065
  572. DOMPERIDONE [Concomitant]
     Active Substance: DOMPERIDONE
  573. EZETIMIBE [Concomitant]
     Active Substance: EZETIMIBE
  574. EZETIMIBE [Concomitant]
     Active Substance: EZETIMIBE
     Route: 065
  575. EZETIMIBE [Concomitant]
     Active Substance: EZETIMIBE
     Route: 065
  576. EZETIMIBE [Concomitant]
     Active Substance: EZETIMIBE
  577. GLUCOPHAGE [Concomitant]
     Active Substance: METFORMIN HYDROCHLORIDE
  578. GLUCOPHAGE [Concomitant]
     Active Substance: METFORMIN HYDROCHLORIDE
     Route: 065
  579. GLUCOPHAGE [Concomitant]
     Active Substance: METFORMIN HYDROCHLORIDE
     Route: 065
  580. GLUCOPHAGE [Concomitant]
     Active Substance: METFORMIN HYDROCHLORIDE
  581. LYRICA [Concomitant]
     Active Substance: PREGABALIN
  582. LYRICA [Concomitant]
     Active Substance: PREGABALIN
     Route: 065
  583. LYRICA [Concomitant]
     Active Substance: PREGABALIN
     Route: 065
  584. LYRICA [Concomitant]
     Active Substance: PREGABALIN
  585. PANTOPRAZOLE [Concomitant]
     Active Substance: PANTOPRAZOLE
  586. PANTOPRAZOLE [Concomitant]
     Active Substance: PANTOPRAZOLE
     Route: 065
  587. PANTOPRAZOLE [Concomitant]
     Active Substance: PANTOPRAZOLE
     Route: 065
  588. PANTOPRAZOLE [Concomitant]
     Active Substance: PANTOPRAZOLE
  589. ROSUVASTATIN [Concomitant]
     Active Substance: ROSUVASTATIN
  590. ROSUVASTATIN [Concomitant]
     Active Substance: ROSUVASTATIN
     Route: 058
  591. ROSUVASTATIN [Concomitant]
     Active Substance: ROSUVASTATIN
     Route: 058
  592. ROSUVASTATIN [Concomitant]
     Active Substance: ROSUVASTATIN
  593. ASCORBIC ACID\ASPIRIN [Concomitant]
     Active Substance: ASCORBIC ACID\ASPIRIN
  594. ASCORBIC ACID\ASPIRIN [Concomitant]
     Active Substance: ASCORBIC ACID\ASPIRIN
     Route: 065
  595. ASCORBIC ACID\ASPIRIN [Concomitant]
     Active Substance: ASCORBIC ACID\ASPIRIN
     Route: 065
  596. ASCORBIC ACID\ASPIRIN [Concomitant]
     Active Substance: ASCORBIC ACID\ASPIRIN
  597. PANTOPRAZOLE MAGNESIUM [Concomitant]
     Active Substance: PANTOPRAZOLE MAGNESIUM
  598. PANTOPRAZOLE MAGNESIUM [Concomitant]
     Active Substance: PANTOPRAZOLE MAGNESIUM
     Route: 065
  599. PANTOPRAZOLE MAGNESIUM [Concomitant]
     Active Substance: PANTOPRAZOLE MAGNESIUM
     Route: 065
  600. PANTOPRAZOLE MAGNESIUM [Concomitant]
     Active Substance: PANTOPRAZOLE MAGNESIUM
  601. AMLODIPINE BESYLATE [Concomitant]
     Active Substance: AMLODIPINE BESYLATE
  602. AMLODIPINE BESYLATE [Concomitant]
     Active Substance: AMLODIPINE BESYLATE
     Route: 065
  603. AMLODIPINE BESYLATE [Concomitant]
     Active Substance: AMLODIPINE BESYLATE
     Route: 065
  604. AMLODIPINE BESYLATE [Concomitant]
     Active Substance: AMLODIPINE BESYLATE
  605. ASPIRIN [Concomitant]
     Active Substance: ASPIRIN
  606. ASPIRIN [Concomitant]
     Active Substance: ASPIRIN
     Route: 065
  607. ASPIRIN [Concomitant]
     Active Substance: ASPIRIN
     Route: 065
  608. ASPIRIN [Concomitant]
     Active Substance: ASPIRIN
  609. METHYLPREDNISOLONE ACETATE [Concomitant]
     Active Substance: METHYLPREDNISOLONE ACETATE
  610. METHYLPREDNISOLONE ACETATE [Concomitant]
     Active Substance: METHYLPREDNISOLONE ACETATE
     Route: 065
  611. METHYLPREDNISOLONE ACETATE [Concomitant]
     Active Substance: METHYLPREDNISOLONE ACETATE
     Route: 065
  612. METHYLPREDNISOLONE ACETATE [Concomitant]
     Active Substance: METHYLPREDNISOLONE ACETATE
  613. ASPIRIN [Concomitant]
     Active Substance: ASPIRIN
     Indication: Product used for unknown indication
  614. ASPIRIN [Concomitant]
     Active Substance: ASPIRIN
     Route: 065
  615. ASPIRIN [Concomitant]
     Active Substance: ASPIRIN
     Route: 065
  616. ASPIRIN [Concomitant]
     Active Substance: ASPIRIN

REACTIONS (53)
  - Influenza [Not Recovered/Not Resolved]
  - Cough [Not Recovered/Not Resolved]
  - Cystitis [Not Recovered/Not Resolved]
  - Influenza like illness [Not Recovered/Not Resolved]
  - Nasopharyngitis [Not Recovered/Not Resolved]
  - Pain [Not Recovered/Not Resolved]
  - Pneumonia [Not Recovered/Not Resolved]
  - Psoriasis [Not Recovered/Not Resolved]
  - Pyrexia [Not Recovered/Not Resolved]
  - Respiratory tract congestion [Not Recovered/Not Resolved]
  - Sinus disorder [Not Recovered/Not Resolved]
  - Skin exfoliation [Not Recovered/Not Resolved]
  - Skin haemorrhage [Not Recovered/Not Resolved]
  - Sneezing [Not Recovered/Not Resolved]
  - Headache [Not Recovered/Not Resolved]
  - Neurologic neglect syndrome [Not Recovered/Not Resolved]
  - Sensory loss [Not Recovered/Not Resolved]
  - Adjustment disorder [Not Recovered/Not Resolved]
  - Affect lability [Not Recovered/Not Resolved]
  - Anxiety [Not Recovered/Not Resolved]
  - Aphasia [Not Recovered/Not Resolved]
  - Carotid artery thrombosis [Not Recovered/Not Resolved]
  - Cerebrovascular accident [Not Recovered/Not Resolved]
  - Confusional state [Not Recovered/Not Resolved]
  - Coordination abnormal [Not Recovered/Not Resolved]
  - Dysarthria [Not Recovered/Not Resolved]
  - Dysphagia [Not Recovered/Not Resolved]
  - Eating disorder [Not Recovered/Not Resolved]
  - Fall [Not Recovered/Not Resolved]
  - Hemiparesis [Not Recovered/Not Resolved]
  - Hemiplegia [Not Recovered/Not Resolved]
  - Motor dysfunction [Not Recovered/Not Resolved]
  - Muscle spasticity [Not Recovered/Not Resolved]
  - Muscular weakness [Not Recovered/Not Resolved]
  - Personality disorder [Not Recovered/Not Resolved]
  - Palpitations [Not Recovered/Not Resolved]
  - Rheumatoid arthritis [Not Recovered/Not Resolved]
  - Gangrene [Not Recovered/Not Resolved]
  - Arterial occlusive disease [Not Recovered/Not Resolved]
  - Sinusitis [Not Recovered/Not Resolved]
  - Angina pectoris [Not Recovered/Not Resolved]
  - Cataract [Not Recovered/Not Resolved]
  - Chest discomfort [Not Recovered/Not Resolved]
  - Arthritis [Not Recovered/Not Resolved]
  - Gastrointestinal disorder [Not Recovered/Not Resolved]
  - Sinus congestion [Not Recovered/Not Resolved]
  - Rhinorrhoea [Not Recovered/Not Resolved]
  - Asthenia [Not Recovered/Not Resolved]
  - Fatigue [Not Recovered/Not Resolved]
  - Vomiting [Not Recovered/Not Resolved]
  - Malaise [Not Recovered/Not Resolved]
  - Nausea [Not Recovered/Not Resolved]
  - Blood pressure increased [Not Recovered/Not Resolved]
